FAERS Safety Report 9672150 (Version 1)
Quarter: 2013Q4

REPORT INFORMATION
  Report Type: Report from Study
  Country: US (occurrence: US)
  Receive Date: 20131106
  Receipt Date: 20131106
  Transmission Date: 20140711
  Serious: Yes (Other)
  Sender: FDA-Public Use
  Company Number: US-ROCHE-1286594

PATIENT
  Age: 58 Year
  Sex: Female

DRUGS (9)
  1. LUCENTIS [Suspect]
     Indication: DIABETIC RETINOPATHY
     Route: 065
  2. LUCENTIS [Suspect]
     Indication: MACULAR OEDEMA
  3. AVASTIN [Suspect]
     Indication: DIABETIC RETINOPATHY
     Dosage: ^0.05 CC^
     Route: 065
  4. AVASTIN [Suspect]
     Indication: MACULAR OEDEMA
  5. HYDROCHLOROTHIAZIDE [Concomitant]
     Dosage: 25
     Route: 065
  6. AMLODIPINE [Concomitant]
     Route: 065
  7. METFORMIN HYDROCHLORIDE [Concomitant]
     Route: 065
  8. GLIPIZIDE [Concomitant]
     Route: 065
  9. PRAVASTATIN [Concomitant]
     Route: 065

REACTIONS (5)
  - Cystoid macular oedema [Unknown]
  - Macular oedema [Unknown]
  - Maculopathy [Unknown]
  - Diabetic retinopathy [Unknown]
  - Diabetic retinopathy [Unknown]
